FAERS Safety Report 10366240 (Version 1)
Quarter: 2014Q3

REPORT INFORMATION
  Report Type: Spontaneous
  Country: US (occurrence: None)
  Receive Date: 20140805
  Receipt Date: 20140805
  Transmission Date: 20150326
  Serious: No
  Sender: FDA-Public Use
  Company Number: None

PATIENT
  Age: 83 Year
  Sex: Female
  Weight: 74.84 kg

DRUGS (6)
  1. FISH OIL [Concomitant]
     Active Substance: FISH OIL
  2. VITAMIN [Concomitant]
     Active Substance: VITAMINS
  3. VITAMIN C + D [Concomitant]
  4. LUMBIGAN [Concomitant]
  5. ULORIC [Suspect]
     Active Substance: FEBUXOSTAT
     Route: 048
     Dates: start: 20140510
  6. CAMBIOGAN [Concomitant]

REACTIONS (2)
  - Hypoaesthesia [None]
  - Rash generalised [None]

NARRATIVE: CASE EVENT DATE: 20140506
